FAERS Safety Report 5512408-1 (Version None)
Quarter: 2007Q4

REPORT INFORMATION
  Report Type: 
  Country: None (occurrence: None)
  Receive Date: 20071108
  Receipt Date: 20071031
  Transmission Date: 20080405
  Serious: Yes (Other)
  Sender: FDA-Public Use
  Company Number: 020172

PATIENT
  Age: 18 Year
  Sex: Female

DRUGS (4)
  1. CLARAVIS [Suspect]
     Indication: ACNE
     Dosage: 40 MG, QD, ORAL; 80 MG, QD, ORAL
     Route: 048
     Dates: start: 20070701, end: 20070801
  2. CLARAVIS [Suspect]
     Indication: ACNE
     Dosage: 40 MG, QD, ORAL; 80 MG, QD, ORAL
     Route: 048
     Dates: start: 20070801, end: 20070911
  3. YAZ [Concomitant]
  4. ZOLOFT [Concomitant]

REACTIONS (3)
  - AGGRESSION [None]
  - MOOD ALTERED [None]
  - SUICIDAL IDEATION [None]
